FAERS Safety Report 5657866-7 (Version None)
Quarter: 2008Q1

REPORT INFORMATION
  Report Type: 
  Country: None (occurrence: None)
  Receive Date: 20080310
  Receipt Date: 20080229
  Transmission Date: 20080703
  Serious: Yes (Hospitalization, Other)
  Sender: FDA-Public Use
  Company Number: US-MERCK-0612USA04040

PATIENT
  Age: 63 Year
  Sex: Female

DRUGS (2)
  1. FOSAMAX [Suspect]
     Indication: OSTEOPOROSIS
     Route: 048
     Dates: start: 19970101, end: 20060701
  2. FOSAMAX PLUS D [Suspect]
     Indication: OSTEOPETROSIS
     Route: 065
     Dates: start: 20020130, end: 20061219

REACTIONS (12)
  - ADHESION [None]
  - BACK PAIN [None]
  - DEHYDRATION [None]
  - DERMAL CYST [None]
  - ELECTROLYTE IMBALANCE [None]
  - GASTROENTERITIS [None]
  - HYPOKALAEMIA [None]
  - HYPONATRAEMIA [None]
  - NEUTROPENIA [None]
  - OSTEONECROSIS [None]
  - PAPILLOMA VIRAL INFECTION [None]
  - SALMONELLOSIS [None]
